FAERS Safety Report 21140376 (Version 3)
Quarter: 2022Q3

REPORT INFORMATION
  Report Type: Other
  Country: DE (occurrence: None)
  Receive Date: 20220728
  Receipt Date: 20220817
  Transmission Date: 20221027
  Serious: No
  Sender: FDA-Public Use
  Company Number: DE-ROCHE-3147687

PATIENT
  Age: 35 Year
  Sex: Female
  Weight: 70 kg

DRUGS (13)
  1. OCRELIZUMAB [Suspect]
     Active Substance: OCRELIZUMAB
     Indication: Relapsing multiple sclerosis
     Route: 042
     Dates: start: 20181203, end: 20181217
  2. OCRELIZUMAB [Suspect]
     Active Substance: OCRELIZUMAB
     Route: 042
     Dates: start: 20190618
  3. CEFPODOXIME [Concomitant]
     Active Substance: CEFPODOXIME
     Indication: Sinusitis
     Route: 048
     Dates: start: 20220805
  4. IVY EXTRACT [Concomitant]
     Active Substance: IVY EXTRACT
     Indication: Cough
     Dosage: DEFINITION OF THE INTERVAL: AS REQUIRED
     Route: 048
     Dates: start: 20220724, end: 20220804
  5. METHYPRED [Concomitant]
     Indication: Premedication
     Route: 042
     Dates: start: 20190618
  6. METHYPRED [Concomitant]
     Route: 042
     Dates: start: 20181203, end: 20181217
  7. ESCITALOPRAM [Concomitant]
     Active Substance: ESCITALOPRAM OXALATE
     Indication: Depression
     Route: 048
     Dates: start: 20150629
  8. CHOLECALCIFEROL [Concomitant]
     Active Substance: CHOLECALCIFEROL
     Indication: Vitamin D deficiency
     Route: 048
     Dates: start: 2015
  9. DIMETHINDENE MALEATE [Concomitant]
     Active Substance: DIMETHINDENE MALEATE
     Indication: Premedication
     Route: 042
     Dates: start: 20181203, end: 20181217
  10. DIMETHINDENE MALEATE [Concomitant]
     Active Substance: DIMETHINDENE MALEATE
     Route: 042
     Dates: start: 20190618
  11. COMIRNATY [Concomitant]
     Active Substance: TOZINAMERAN
     Indication: COVID-19 prophylaxis
     Route: 030
     Dates: start: 20210701, end: 20210701
  12. COMIRNATY [Concomitant]
     Active Substance: TOZINAMERAN
     Route: 030
     Dates: start: 20210520, end: 20210520
  13. COMIRNATY [Concomitant]
     Active Substance: TOZINAMERAN
     Route: 030
     Dates: start: 20220711, end: 20220711

REACTIONS (2)
  - COVID-19 [Recovered/Resolved]
  - Sinusitis [Not Recovered/Not Resolved]

NARRATIVE: CASE EVENT DATE: 20220724
